FAERS Safety Report 16337066 (Version 1)
Quarter: 2019Q2

REPORT INFORMATION
  Report Type: Spontaneous
  Country: US (occurrence: US)
  Receive Date: 20190415
  Receipt Date: 20190415
  Transmission Date: 20190711
  Serious: No
  Sender: FDA-Public Use
  Company Number: None

PATIENT
  Age: 64 Year
  Sex: Female

DRUGS (3)
  1. FORTEO [Suspect]
     Active Substance: TERIPARATIDE
     Dates: start: 201901
  2. XELJANZ [Concomitant]
     Active Substance: TOFACITINIB CITRATE
  3. OTEZLA [Concomitant]
     Active Substance: APREMILAST

REACTIONS (4)
  - Neck pain [None]
  - Muscle spasms [None]
  - Dizziness [None]
  - Pollakiuria [None]

NARRATIVE: CASE EVENT DATE: 20190408
